FAERS Safety Report 9229032 (Version 1)
Quarter: 2013Q2

REPORT INFORMATION
  Report Type: Spontaneous
  Country: GB (occurrence: GB)
  Receive Date: 20130412
  Receipt Date: 20130412
  Transmission Date: 20140414
  Serious: Yes (Disabling)
  Sender: FDA-Public Use
  Company Number: GB-ALLERGAN-1305205US

PATIENT
  Age: 79 Year
  Sex: Male
  Weight: 82 kg

DRUGS (4)
  1. TROSPIUM CHLORIDE UNK [Suspect]
     Indication: PRODUCT USED FOR UNKNOWN INDICATION
     Dosage: UNK UNK, SINGLE
     Dates: start: 20130226, end: 20130226
  2. PROPRANOLOL [Concomitant]
     Indication: PRODUCT USED FOR UNKNOWN INDICATION
     Dosage: UNK
     Dates: start: 20121102
  3. SPIRONOLACTONE [Concomitant]
     Indication: PRODUCT USED FOR UNKNOWN INDICATION
     Dosage: UNK
     Dates: start: 20121205
  4. FERROUS FUMARATE [Concomitant]
     Indication: PRODUCT USED FOR UNKNOWN INDICATION
     Dosage: UNK
     Dates: start: 20121205

REACTIONS (2)
  - Confusional state [Recovered/Resolved]
  - Disorientation [Recovered/Resolved]
